FAERS Safety Report 22751602 (Version 4)
Quarter: 2024Q4

REPORT INFORMATION
  Report Type: Spontaneous
  Country: AR (occurrence: AR)
  Receive Date: 20230726
  Receipt Date: 20241007
  Transmission Date: 20250114
  Serious: No
  Sender: PFIZER
  Company Number: AR-PFIZER INC-PV202300126018

PATIENT
  Age: 47 Year
  Sex: Female

DRUGS (1)
  1. ENBREL [Suspect]
     Active Substance: ETANERCEPT
     Indication: Rheumatoid arthritis
     Dosage: 50 MG, EVERY 15 DAYS
     Dates: start: 20040920

REACTIONS (6)
  - Pain [Not Recovered/Not Resolved]
  - Off label use [Unknown]
  - Device malfunction [Not Recovered/Not Resolved]
  - Needle issue [Not Recovered/Not Resolved]
  - Device difficult to use [Unknown]
  - Device issue [Unknown]

NARRATIVE: CASE EVENT DATE: 20040920
